FAERS Safety Report 7138870-9 (Version None)
Quarter: 2010Q4

REPORT INFORMATION
  Report Type: 
  Country: None (occurrence: None)
  Receive Date: 20101206
  Receipt Date: 20101125
  Transmission Date: 20110411
  Serious: Yes (Disabling)
  Sender: FDA-Public Use
  Company Number: BR-ASTRAZENECA-2010SE56240

PATIENT
  Age: 32 Year
  Sex: Male
  Weight: 96 kg

DRUGS (2)
  1. SEROQUEL [Suspect]
     Indication: BIPOLAR DISORDER
     Route: 048
     Dates: start: 20100901
  2. CARBOLITHIUM [Concomitant]
     Indication: BIPOLAR DISORDER
     Route: 048
     Dates: start: 20050101

REACTIONS (5)
  - EYE MOVEMENT DISORDER [None]
  - FALL [None]
  - INCORRECT DRUG DOSAGE FORM ADMINISTERED [None]
  - SOMNOLENCE [None]
  - UPPER LIMB FRACTURE [None]
